FAERS Safety Report 7073095-7 (Version None)
Quarter: 2010Q4

REPORT INFORMATION
  Report Type: 
  Country: None (occurrence: None)
  Receive Date: 20101029
  Receipt Date: 20100423
  Transmission Date: 20110411
  Serious: No
  Sender: FDA-Public Use
  Company Number: A0856490A

PATIENT
  Sex: Female

DRUGS (1)
  1. ADVAIR DISKUS 100/50 [Suspect]
     Indication: CHRONIC OBSTRUCTIVE PULMONARY DISEASE
     Route: 055
     Dates: start: 20010101

REACTIONS (5)
  - ANXIETY [None]
  - COUGH [None]
  - MUSCLE SPASMS [None]
  - PHARYNGEAL DISORDER [None]
  - TREATMENT NONCOMPLIANCE [None]
